FAERS Safety Report 4926854-8 (Version None)
Quarter: 2006Q1

REPORT INFORMATION
  Report Type: 
  Country: None (occurrence: None)
  Receive Date: 20060228
  Receipt Date: 20050705
  Transmission Date: 20060701
  Serious: Yes (Other)
  Sender: FDA-Public Use
  Company Number: US-GLAXOSMITHKLINE-A0564977A

PATIENT
  Age: 41 Year
  Sex: Female

DRUGS (4)
  1. LAMICTAL [Suspect]
     Dosage: 75MG TWICE PER DAY
     Route: 048
     Dates: start: 20050526
  2. KEPPRA [Concomitant]
  3. DIAZEPAM [Concomitant]
  4. NEURONTIN [Concomitant]
     Dates: end: 20050604

REACTIONS (6)
  - ASTHENIA [None]
  - CONVULSION [None]
  - DECREASED APPETITE [None]
  - DIZZINESS [None]
  - INSOMNIA [None]
  - NAUSEA [None]
